FAERS Safety Report 6033056-3 (Version None)
Quarter: 2009Q1

REPORT INFORMATION
  Report Type: 
  Country: None (occurrence: None)
  Receive Date: 20090109
  Receipt Date: 20081229
  Transmission Date: 20090719
  Serious: Yes (Other)
  Sender: FDA-Public Use
  Company Number: BR-PFIZER INC-2008096829

PATIENT

DRUGS (1)
  1. CHAMPIX [Suspect]
     Indication: TOBACCO USER
     Dosage: 1 MG, 2X/DAY
     Route: 048
     Dates: start: 20081001

REACTIONS (4)
  - BLOOD PRESSURE INCREASED [None]
  - CRYING [None]
  - HEADACHE [None]
  - SOCIAL AVOIDANT BEHAVIOUR [None]
